FAERS Safety Report 9375655 (Version 2)
Quarter: 2013Q3

REPORT INFORMATION
  Report Type: Spontaneous
  Country: DE (occurrence: DE)
  Receive Date: 20130628
  Receipt Date: 20130704
  Transmission Date: 20140515
  Serious: Yes (Other)
  Sender: FDA-Public Use
  Company Number: PHHY2013DE065794

PATIENT
  Age: 46 Year
  Sex: Female

DRUGS (2)
  1. ACETYLSALICYLIC ACID [Suspect]
     Indication: HEADACHE
     Dosage: 1000 MG, UNK
  2. ANALGESICS [Suspect]
     Indication: HEADACHE

REACTIONS (4)
  - Renal papillary necrosis [Recovering/Resolving]
  - Haematuria [Recovering/Resolving]
  - Microcytic anaemia [Recovering/Resolving]
  - Urethral haemorrhage [Recovering/Resolving]
